FAERS Safety Report 24402210 (Version 1)
Quarter: 2024Q4

REPORT INFORMATION
  Report Type: Spontaneous
  Country: US (occurrence: US)
  Receive Date: 20241007
  Receipt Date: 20241007
  Transmission Date: 20250115
  Serious: Yes (Death, Hospitalization, Other)
  Sender: NOVO NORDISK
  Company Number: US-NOVOPROD-1291998

PATIENT
  Age: 53 Year
  Sex: Female

DRUGS (3)
  1. OZEMPIC [Suspect]
     Active Substance: SEMAGLUTIDE
     Indication: Type 2 diabetes mellitus
     Dosage: 0.25 MG ONCE WEEKLY
     Route: 058
     Dates: start: 202203
  2. OZEMPIC [Suspect]
     Active Substance: SEMAGLUTIDE
     Dosage: 1 MG, QW
     Route: 058
     Dates: start: 202205
  3. OZEMPIC [Suspect]
     Active Substance: SEMAGLUTIDE
     Indication: Weight decreased
     Dosage: 0.5 MG, QW
     Route: 058
     Dates: start: 202204

REACTIONS (5)
  - Septic shock [Fatal]
  - Large intestinal obstruction [Fatal]
  - Deep vein thrombosis [Unknown]
  - Hypokalaemia [Unknown]
  - Gastritis [Unknown]

NARRATIVE: CASE EVENT DATE: 20220830
